FAERS Safety Report 23957943 (Version 1)
Quarter: 2024Q2

REPORT INFORMATION
  Report Type: Spontaneous
  Country: US (occurrence: US)
  Receive Date: 20240610
  Receipt Date: 20240610
  Transmission Date: 20240715
  Serious: Yes (Other)
  Sender: FDA-Public Use
  Company Number: US-MEDICUREINC-2024USLIT00029

PATIENT
  Age: 77 Year
  Sex: Female

DRUGS (3)
  1. AGGRASTAT [Suspect]
     Active Substance: TIROFIBAN HYDROCHLORIDE
     Indication: Acute myocardial infarction
  2. TICAGRELOR [Suspect]
     Active Substance: TICAGRELOR
     Indication: Acute myocardial infarction
  3. ASPIRIN [Suspect]
     Active Substance: ASPIRIN
     Indication: Acute myocardial infarction

REACTIONS (2)
  - Acute respiratory failure [Recovered/Resolved]
  - Haemoptysis [Recovered/Resolved]
